FAERS Safety Report 12458323 (Version 2)
Quarter: 2016Q3

REPORT INFORMATION
  Report Type: Spontaneous
  Country: JP (occurrence: JP)
  Receive Date: 20160613
  Receipt Date: 20160701
  Transmission Date: 20161109
  Serious: Yes (Other)
  Sender: FDA-Public Use
  Company Number: JP-009507513-1606JPN005263

PATIENT
  Age: 87 Year
  Sex: Female

DRUGS (3)
  1. PREMINENT TABLETS [Suspect]
     Active Substance: HYDROCHLOROTHIAZIDE\LOSARTAN POTASSIUM
     Indication: OEDEMA
     Dosage: 1 DF, QD
     Route: 048
     Dates: start: 20150928, end: 20160610
  2. EQUA [Suspect]
     Active Substance: VILDAGLIPTIN
     Indication: TYPE 2 DIABETES MELLITUS
     Dosage: 50 MG, BID
     Route: 048
     Dates: end: 20160610
  3. IRBETAN [Suspect]
     Active Substance: IRBESARTAN
     Dosage: DAILY DOSAGE UNKNOWN
     Route: 048
     Dates: end: 20160610

REACTIONS (1)
  - Pemphigoid [Recovering/Resolving]

NARRATIVE: CASE EVENT DATE: 20160608
